FAERS Safety Report 7853707-8 (Version None)
Quarter: 2011Q4

REPORT INFORMATION
  Report Type: 
  Country: None (occurrence: None)
  Receive Date: 20111026
  Receipt Date: 20111021
  Transmission Date: 20120403
  Serious: Yes (Hospitalization)
  Sender: FDA-Public Use
  Company Number: US-CEPHALON-2011004396

PATIENT
  Sex: Female
  Weight: 70 kg

DRUGS (8)
  1. XYREM [Concomitant]
     Dates: start: 20110501
  2. PROVIGIL [Suspect]
     Route: 048
     Dates: start: 20110511
  3. YAZ [Suspect]
     Indication: ORAL CONTRACEPTION
     Dates: end: 20110818
  4. SINGULAIR [Concomitant]
  5. ZYRTEC [Concomitant]
  6. PROVIGIL [Suspect]
     Indication: NARCOLEPSY
     Route: 048
     Dates: start: 20050101, end: 20110401
  7. NUVIGIL [Suspect]
  8. NASONEX [Concomitant]

REACTIONS (2)
  - PULMONARY EMBOLISM [None]
  - DEEP VEIN THROMBOSIS [None]
